FAERS Safety Report 9866909 (Version 1)
Quarter: 2014Q1

REPORT INFORMATION
  Report Type: Spontaneous
  Country: US (occurrence: None)
  Receive Date: 20140203
  Receipt Date: 20140203
  Transmission Date: 20141002
  Serious: Yes (Disabling, Other)
  Sender: FDA-Public Use
  Company Number: None

PATIENT
  Age: 27 Year
  Sex: Male
  Weight: 74.84 kg

DRUGS (1)
  1. LARIAM [Suspect]
     Indication: MALARIA PROPHYLAXIS
     Dosage: TAKEN BY MOUTH
     Dates: start: 20111201, end: 20130101

REACTIONS (8)
  - Incorrect drug administration duration [None]
  - Tic [None]
  - Coprolalia [None]
  - Amnesia [None]
  - Mood swings [None]
  - Abnormal dreams [None]
  - Hallucination [None]
  - Stress [None]
